FAERS Safety Report 6957005-6 (Version None)
Quarter: 2010Q3

REPORT INFORMATION
  Report Type: 
  Country: None (occurrence: None)
  Receive Date: 20100827
  Receipt Date: 20100827
  Transmission Date: 20110219
  Serious: Yes (Other)
  Sender: FDA-Public Use
  Company Number: None

PATIENT
  Age: 62 Year
  Sex: Female
  Weight: 59.4212 kg

DRUGS (1)
  1. SORAFENIB 200MG BAYER [Suspect]
     Indication: SARCOMA
     Dosage: 200MG/400MG QAM/QPM PO
     Route: 048
     Dates: start: 20100816, end: 20100825

REACTIONS (3)
  - ERYTHEMA [None]
  - PRURITUS [None]
  - RASH MACULO-PAPULAR [None]
